FAERS Safety Report 5975170-4 (Version None)
Quarter: 2008Q4

REPORT INFORMATION
  Report Type: 
  Country: None (occurrence: None)
  Receive Date: 20081128
  Receipt Date: 20081119
  Transmission Date: 20090506
  Serious: Yes (Hospitalization, Other)
  Sender: FDA-Public Use
  Company Number: 2008-04238

PATIENT
  Age: 60 Year
  Sex: Female

DRUGS (2)
  1. VELCADE [Suspect]
     Indication: MULTIPLE MYELOMA
     Dosage: 1.75 MG, UNK, INTRAVENOUS
     Route: 042
     Dates: start: 20080601, end: 20081001
  2. DEXAMETHASONE [Concomitant]

REACTIONS (6)
  - CONVULSION [None]
  - DIARRHOEA [None]
  - SICK SINUS SYNDROME [None]
  - VENTRICULAR ASYSTOLE [None]
  - VOMITING [None]
  - WHITE BLOOD CELL COUNT DECREASED [None]
